FAERS Safety Report 23167195 (Version 2)
Quarter: 2023Q4

REPORT INFORMATION
  Report Type: Spontaneous
  Country: TN (occurrence: TN)
  Receive Date: 20231109
  Receipt Date: 20231128
  Transmission Date: 20240109
  Serious: Yes (Hospitalization, Other)
  Sender: FDA-Public Use
  Company Number: TN-SA-SAC20230829001240

PATIENT
  Age: 74 Year
  Sex: Male

DRUGS (10)
  1. PLAVIX [Suspect]
     Active Substance: CLOPIDOGREL BISULFATE
     Indication: Arteriosclerosis coronary artery
     Dosage: 2 DF, QD
     Dates: start: 20230811, end: 20230826
  2. PLAVIX [Suspect]
     Active Substance: CLOPIDOGREL BISULFATE
     Indication: Stenosis
     Dosage: 1 DF, QD
     Route: 065
     Dates: start: 202307
  3. PLAVIX [Suspect]
     Active Substance: CLOPIDOGREL BISULFATE
     Dosage: 1 DF, QD
     Route: 065
     Dates: start: 20230830
  4. METHYLPREDNISOLONE [Suspect]
     Active Substance: METHYLPREDNISOLONE
     Dosage: 0.5 DF, QD
     Route: 065
  5. AMLODIPINE BESYLATE\IRBESARTAN [Concomitant]
     Active Substance: AMLODIPINE BESYLATE\IRBESARTAN
     Dosage: UNK
  6. DIABITOS [Concomitant]
     Indication: Diabetes mellitus
     Dosage: UNK
  7. IRYS [Concomitant]
     Dosage: UNK
  8. .ALPHA.-TOCOPHEROL [Concomitant]
     Active Substance: .ALPHA.-TOCOPHEROL
     Dosage: 1 DF, QD
     Route: 065
  9. METHICILLIN [Concomitant]
     Active Substance: METHICILLIN
     Dosage: UNK
     Route: 065
  10. TORVA [ATORVASTATIN CALCIUM] [Concomitant]
     Dosage: UNK
     Route: 065

REACTIONS (18)
  - Acute pulmonary oedema [Unknown]
  - Seizure [Unknown]
  - Loss of consciousness [Unknown]
  - Amnesia [Unknown]
  - Confusional state [Unknown]
  - Cerebral haematoma [Unknown]
  - Haemorrhage [Unknown]
  - Subdural haematoma [Unknown]
  - Amnestic disorder [Unknown]
  - Somnolence [Unknown]
  - Asthenia [Unknown]
  - Fatigue [Unknown]
  - Cerebral calcification [Unknown]
  - Oedema [Unknown]
  - Somnolence [Unknown]
  - Hyperacusis [Unknown]
  - Confusional state [Unknown]
  - Headache [Unknown]

NARRATIVE: CASE EVENT DATE: 20230819
